FAERS Safety Report 5155503-1 (Version None)
Quarter: 2006Q4

REPORT INFORMATION
  Report Type: 
  Country: None (occurrence: None)
  Receive Date: 20061114
  Receipt Date: 20061011
  Transmission Date: 20070319
  Serious: Yes (Hospitalization, Other)
  Sender: FDA-Public Use
  Company Number: 2006125503

PATIENT
  Sex: Female

DRUGS (1)
  1. DILANTIN [Suspect]
     Indication: CONVULSION
     Dosage: 300 MG (100 MG, 3 IN 1 D, ORAL)
     Route: 048
     Dates: start: 19750101, end: 20060101

REACTIONS (8)
  - CONVULSION [None]
  - HERPES SIMPLEX [None]
  - HIP FRACTURE [None]
  - OSTEOPOROSIS [None]
  - PELVIC FRACTURE [None]
  - POOR PERIPHERAL CIRCULATION [None]
  - RIB FRACTURE [None]
  - ROAD TRAFFIC ACCIDENT [None]
